FAERS Safety Report 25216475 (Version 2)
Quarter: 2025Q2

REPORT INFORMATION
  Report Type: Spontaneous
  Country: US (occurrence: US)
  Receive Date: 20250418
  Receipt Date: 20250507
  Transmission Date: 20250716
  Serious: Yes (Death, Other)
  Sender: MALLINCKRODT
  Company Number: US-MALLINCKRODT-MNK202501842

PATIENT
  Age: 63 Year
  Sex: Female
  Weight: 90 kg

DRUGS (28)
  1. CORTICOTROPIN [Suspect]
     Active Substance: CORTICOTROPIN
     Indication: Keratitis
     Route: 058
     Dates: start: 20240320
  2. AMITRIPTYLINE [Concomitant]
     Active Substance: AMITRIPTYLINE
  3. AMLODIPINE [Concomitant]
     Active Substance: AMLODIPINE BESYLATE
  4. CARVEDILOL [Concomitant]
     Active Substance: CARVEDILOL
  5. DEXILANT [Concomitant]
     Active Substance: DEXLANSOPRAZOLE
  6. DOCUSATE SODIUM [Concomitant]
     Active Substance: DOCUSATE SODIUM
  7. ELIQUIS [Concomitant]
     Active Substance: APIXABAN
  8. ERYTHROMYCIN [Concomitant]
     Active Substance: ERYTHROMYCIN
  9. FOLIC ACID [Concomitant]
     Active Substance: FOLIC ACID
  10. ISOSORBIDE MONONITRATE [Concomitant]
     Active Substance: ISOSORBIDE MONONITRATE
  11. KETOROLAC [Concomitant]
     Active Substance: KETOROLAC TROMETHAMINE
  12. LISINOPRIL [Concomitant]
     Active Substance: LISINOPRIL
  13. METAXALONE [Concomitant]
     Active Substance: METAXALONE
  14. MONTELUKAST [Concomitant]
     Active Substance: MONTELUKAST
  15. VITAMINS [Concomitant]
     Active Substance: VITAMINS
  16. MURO 128 [Concomitant]
     Active Substance: SODIUM CHLORIDE
  17. OFLOXACIN [Concomitant]
     Active Substance: OFLOXACIN
  18. REFRESH CLASSIC [Concomitant]
     Active Substance: POLYVINYL ALCOHOL\POVIDONE
  19. VITAMIN B12 [Concomitant]
     Active Substance: CYANOCOBALAMIN
  20. LATANOPROST [Concomitant]
     Active Substance: LATANOPROST
  21. METFORMIN [Concomitant]
     Active Substance: METFORMIN HYDROCHLORIDE
  22. NIFEDIPINE [Concomitant]
     Active Substance: NIFEDIPINE
  23. ROSUVASTATIN [Concomitant]
     Active Substance: ROSUVASTATIN
  24. PREGABALIN [Concomitant]
     Active Substance: PREGABALIN
  25. RASUVO [Concomitant]
     Active Substance: METHOTREXATE SODIUM
  26. TRAMADOL [Concomitant]
     Active Substance: TRAMADOL
  27. HYDROCODONE BITARTRATE AND ACETAMINOPHEN [Concomitant]
     Active Substance: ACETAMINOPHEN\HYDROCODONE BITARTRATE
  28. HUMIRA [Concomitant]
     Active Substance: ADALIMUMAB

REACTIONS (6)
  - Death [Fatal]
  - Fall [Unknown]
  - Hip fracture [Unknown]
  - Bronchitis [Recovering/Resolving]
  - Back pain [Recovering/Resolving]
  - Overdose [Unknown]

NARRATIVE: CASE EVENT DATE: 20250301
